FAERS Safety Report 16428909 (Version 3)
Quarter: 2019Q3

REPORT INFORMATION
  Report Type: Spontaneous
  Country: US (occurrence: US)
  Receive Date: 20190613
  Receipt Date: 20190722
  Transmission Date: 20191004
  Serious: No
  Sender: FDA-Public Use
  Company Number: US-009507513-1906USA004948

PATIENT
  Age: 61 Year
  Sex: Female

DRUGS (6)
  1. CEFTIN [Concomitant]
     Active Substance: CEFUROXIME AXETIL
  2. STEGLATRO [Suspect]
     Active Substance: ERTUGLIFLOZIN PIDOLATE
     Indication: TYPE 2 DIABETES MELLITUS
     Dosage: ONE TABLET DAILY
     Route: 048
     Dates: start: 201903
  3. PANTOPRAZOLE [Concomitant]
     Active Substance: PANTOPRAZOLE
  4. METFORMIN [Concomitant]
     Active Substance: METFORMIN HYDROCHLORIDE
  5. CYMBALTA [Concomitant]
     Active Substance: DULOXETINE HYDROCHLORIDE
  6. LOSARTAN. [Concomitant]
     Active Substance: LOSARTAN

REACTIONS (3)
  - Glycosylated haemoglobin increased [Unknown]
  - Genital discomfort [Not Recovered/Not Resolved]
  - Weight decreased [Unknown]

NARRATIVE: CASE EVENT DATE: 20190609
